FAERS Safety Report 10560040 (Version 1)
Quarter: 2014Q4

REPORT INFORMATION
  Report Type: Spontaneous
  Country: US (occurrence: None)
  Receive Date: 20141031
  Receipt Date: 20141031
  Transmission Date: 20150529
  Serious: Yes (Other)
  Sender: FDA-Public Use
  Company Number: None

PATIENT
  Age: 25 Year
  Sex: Female
  Weight: 54.43 kg

DRUGS (1)
  1. CLEAR START DAYTIME TREATMENT DERMALOGICA [Suspect]
     Active Substance: BENZOYL PEROXIDE
     Indication: ACNE
     Dosage: ONCE DAILY, APPLIED TO A SURFACE, USUALLY THE SKIN
     Dates: start: 20141030, end: 20141030

REACTIONS (3)
  - Application site paraesthesia [None]
  - Application site pain [None]
  - Application site rash [None]

NARRATIVE: CASE EVENT DATE: 20141030
